FAERS Safety Report 8209649-1 (Version None)
Quarter: 2012Q1

REPORT INFORMATION
  Report Type: 
  Country: None (occurrence: None)
  Receive Date: 20120314
  Receipt Date: 20120301
  Transmission Date: 20120608
  Serious: Yes (Hospitalization)
  Sender: FDA-Public Use
  Company Number: IT-MYLANLABS-2012S1004658

PATIENT
  Age: 78 Year
  Sex: Female

DRUGS (5)
  1. TRIMETON /00086101/ [Concomitant]
     Indication: PRODUCT USED FOR UNKNOWN INDICATION
     Dosage: 10MG/1 ML INJECTABLE SOLUTION 5 VIALS 1 ML
     Dates: start: 20120229, end: 20120229
  2. PANTOPRAZOLE SODIUM [Concomitant]
     Indication: PRODUCT USED FOR UNKNOWN INDICATION
     Dosage: 1  BOTTLE FOR IV ADMINISTRATION AFTER RECONSTITUTION, POWDER FOR INJECTABLE SOLUTION
     Dates: start: 20120229, end: 20120229
  3. GRANISETRON [Concomitant]
     Indication: PRODUCT USED FOR UNKNOWN INDICATION
     Dosage: 1 MG/ML INJECTABLE SOLUTION FOR IV ADMINISTRATION
     Dates: start: 20120229, end: 20120229
  4. PACLITAXEL [Suspect]
     Indication: OVARIAN NEOPLASM
     Route: 042
     Dates: start: 20110531, end: 20120229
  5. DESAMETASONE FOSF /00016002/ [Concomitant]
     Indication: PRODUCT USED FOR UNKNOWN INDICATION
     Dosage: 4MG/ML INJECTABLE SOLUTION 3 VIALS 1 ML
     Dates: start: 20120229, end: 20120229

REACTIONS (3)
  - BACK PAIN [None]
  - AGITATION [None]
  - TREMOR [None]
